FAERS Safety Report 14873268 (Version 1)
Quarter: 2018Q2

REPORT INFORMATION
  Report Type: Spontaneous
  Country: US (occurrence: US)
  Receive Date: 20180510
  Receipt Date: 20180510
  Transmission Date: 20180711
  Serious: No
  Sender: FDA-Public Use
  Company Number: US-PFIZER INC-2018188840

PATIENT
  Age: 85 Year
  Sex: Female
  Weight: 48.8 kg

DRUGS (1)
  1. GABAPENTIN. [Suspect]
     Active Substance: GABAPENTIN
     Dosage: TAKE ONE TABLET BY MOUTH AT BEDTIME
     Route: 048

REACTIONS (2)
  - Drug ineffective [Unknown]
  - Thyroid disorder [Unknown]
